FAERS Safety Report 13953875 (Version 1)
Quarter: 2017Q3

REPORT INFORMATION
  Report Type: Spontaneous
  Country: US (occurrence: US)
  Receive Date: 20170908
  Receipt Date: 20170908
  Transmission Date: 20171128
  Serious: Yes (Life-Threatening, Hospitalization, Disabling)
  Sender: FDA-Public Use
  Company Number: None

PATIENT
  Age: 81 Year
  Sex: Female
  Weight: 62.4 kg

DRUGS (1)
  1. MELOXICAM TABLET [Suspect]
     Active Substance: MELOXICAM

REACTIONS (1)
  - Acute myocardial infarction [None]

NARRATIVE: CASE EVENT DATE: 20170830
